FAERS Safety Report 11993112 (Version 1)
Quarter: 2016Q1

REPORT INFORMATION
  Report Type: Spontaneous
  Country: US (occurrence: None)
  Receive Date: 20160202
  Receipt Date: 20160202
  Transmission Date: 20160526
  Serious: Yes (Other)
  Sender: FDA-Public Use
  Company Number: None

PATIENT
  Age: 68 Year
  Sex: Male
  Weight: 80.74 kg

DRUGS (7)
  1. FLUTICASONE PROPIONATE 50 MPG ROXANE LABORATORIES [Suspect]
     Active Substance: FLUTICASONE PROPIONATE
     Indication: SINUS DISORDER
     Dosage: 2 SPRAYS./DAY DID JUST ONE
     Dates: start: 20141015, end: 20160130
  2. FLUTICASONE PROPIONATE. [Concomitant]
     Active Substance: FLUTICASONE PROPIONATE
  3. MULTI VITAMIN [Concomitant]
     Active Substance: VITAMINS
  4. VITAMIN C [Concomitant]
     Active Substance: ASCORBIC ACID
  5. OCUVITE [Concomitant]
     Active Substance: VITAMINS
  6. VITAMIN E [Concomitant]
     Active Substance: .ALPHA.-TOCOPHEROL
  7. FLUTICASONE PROPIONATE 50 MPG ROXANE LABORATORIES [Suspect]
     Active Substance: FLUTICASONE PROPIONATE
     Indication: NASOPHARYNGITIS
     Dosage: 2 SPRAYS./DAY DID JUST ONE
     Dates: start: 20141015, end: 20160130

REACTIONS (5)
  - Fatigue [None]
  - Sleep disorder [None]
  - Herpes zoster [None]
  - Immune system disorder [None]
  - Erectile dysfunction [None]

NARRATIVE: CASE EVENT DATE: 20160130
